FAERS Safety Report 7537639-0 (Version None)
Quarter: 2011Q2

REPORT INFORMATION
  Report Type: 
  Country: None (occurrence: None)
  Receive Date: 20110609
  Receipt Date: 20070718
  Transmission Date: 20111010
  Serious: Yes (Other)
  Sender: FDA-Public Use
  Company Number: PHMT2006CA00595

PATIENT
  Sex: Female

DRUGS (8)
  1. PANTOLOC ^SOLVAY^ [Concomitant]
  2. SENNOSIDE [Concomitant]
  3. SANDOSTATIN LAR [Suspect]
     Indication: ANGIODYSPLASIA
     Dosage: 30 MG, ONCE A MONTH
     Route: 030
     Dates: start: 20050620
  4. ACTONEL [Concomitant]
  5. HYDROCHLOROTHIAZIDE [Concomitant]
  6. APO-FUROSEMIDE [Concomitant]
  7. DILANTIN /CAN/ [Concomitant]
  8. TIAZAC [Concomitant]

REACTIONS (7)
  - BLOOD PRESSURE INCREASED [None]
  - FATIGUE [None]
  - VARICOSE ULCERATION [None]
  - DYSPNOEA [None]
  - ARTHROPATHY [None]
  - PALLOR [None]
  - OEDEMA PERIPHERAL [None]
